FAERS Safety Report 4983189-5 (Version None)
Quarter: 2006Q2

REPORT INFORMATION
  Report Type: 
  Country: None (occurrence: None)
  Receive Date: 20060426
  Receipt Date: 20060313
  Transmission Date: 20061013
  Serious: Yes (Hospitalization)
  Sender: FDA-Public Use
  Company Number: NL-GLAXOSMITHKLINE-B0416411A

PATIENT
  Age: 39 Year
  Sex: Male

DRUGS (2)
  1. LAMOTRIGINE [Suspect]
     Indication: DRUG USE FOR UNKNOWN INDICATION
     Dosage: 200MG THREE TIMES PER DAY
     Route: 065
     Dates: start: 19980101
  2. DEPAKENE [Concomitant]
     Dosage: 1050MG PER DAY
     Dates: start: 19980101

REACTIONS (7)
  - DISORIENTATION [None]
  - DIZZINESS [None]
  - HEAD DISCOMFORT [None]
  - NAUSEA [None]
  - RETCHING [None]
  - VISUAL FIELD DEFECT [None]
  - VOMITING [None]
